FAERS Safety Report 7917497-2 (Version None)
Quarter: 2011Q4

REPORT INFORMATION
  Report Type: 
  Country: None (occurrence: None)
  Receive Date: 20111116
  Receipt Date: 20111114
  Transmission Date: 20120403
  Serious: Yes (Other)
  Sender: FDA-Public Use
  Company Number: US-SANOFI-AVENTIS-2011SA060780

PATIENT
  Age: 67 Year
  Sex: Female
  Weight: 78.9 kg

DRUGS (12)
  1. LASIX [Concomitant]
  2. MULTAQ [Suspect]
     Indication: ATRIAL FIBRILLATION
     Route: 048
     Dates: start: 20110824, end: 20110912
  3. CLONIDINE [Concomitant]
     Dates: start: 20110101
  4. TOPROL-XL [Concomitant]
  5. LISINOPRIL AND HYDROCHLOROTHIAZIDE [Concomitant]
     Indication: HYPERTENSION
     Dosage: 20/12.5
  6. LOPRESSOR [Concomitant]
     Indication: HYPERTENSION
  7. CLONIDINE [Concomitant]
     Indication: HYPERTENSION
  8. ASPIRIN [Concomitant]
  9. ZETIA [Concomitant]
  10. KLOR-CON [Concomitant]
  11. COUMADIN [Concomitant]
     Dosage: USED AS DIRECTED ^UAD^
  12. PROCARDIA XL [Concomitant]

REACTIONS (6)
  - GASTROOESOPHAGEAL REFLUX DISEASE [None]
  - BLOOD PRESSURE INCREASED [None]
  - PALPITATIONS [None]
  - ASTHENIA [None]
  - DYSPEPSIA [None]
  - ABDOMINAL PAIN [None]
